FAERS Safety Report 10341039 (Version 2)
Quarter: 2014Q3

REPORT INFORMATION
  Report Type: Spontaneous
  Country: US (occurrence: US)
  Receive Date: 20140724
  Receipt Date: 20140724
  Transmission Date: 20150326
  Serious: No
  Sender: FDA-Public Use
  Company Number: US-MYLANLABS-2013S1027457

PATIENT
  Age: 94 Year
  Sex: Male
  Weight: 107.96 kg

DRUGS (4)
  1. LEVOTHYROXINE SODIUM TABLETS, USP [Suspect]
     Active Substance: LEVOTHYROXINE SODIUM
     Indication: FATIGUE
     Route: 048
     Dates: start: 201303, end: 20131208
  2. LASIX [Concomitant]
     Active Substance: FUROSEMIDE
  3. ASA [Concomitant]
     Active Substance: ASPIRIN
  4. LEVOTHYROXINE SODIUM TABLETS, USP [Suspect]
     Active Substance: LEVOTHYROXINE SODIUM
     Indication: OFF LABEL USE
     Route: 048
     Dates: start: 201303, end: 20131208

REACTIONS (4)
  - Cough [Not Recovered/Not Resolved]
  - Oropharyngeal pain [Not Recovered/Not Resolved]
  - Heart rate decreased [Recovered/Resolved]
  - Constipation [Not Recovered/Not Resolved]

NARRATIVE: CASE EVENT DATE: 201303
